FAERS Safety Report 15917110 (Version 8)
Quarter: 2019Q2

REPORT INFORMATION
  Report Type: Spontaneous
  Country: FR (occurrence: FR)
  Receive Date: 20190205
  Receipt Date: 20190425
  Transmission Date: 20190711
  Serious: Yes (Other)
  Sender: FDA-Public Use
  Company Number: FR-ACCORD-105712

PATIENT
  Age: 1 Day
  Sex: Male
  Weight: 1.89 kg

DRUGS (31)
  1. ARIPIPRAZOLE. [Suspect]
     Active Substance: ARIPIPRAZOLE
     Indication: BIPOLAR I DISORDER
     Dosage: 10 MG, QD
     Route: 064
     Dates: start: 20160930, end: 20170224
  2. FUROSEMIDE. [Suspect]
     Active Substance: FUROSEMIDE
     Indication: HYPERTENSION
     Dosage: 40 MG, UNK (SCORED TABLET)
     Route: 064
     Dates: start: 20170516
  3. LABETALOL/LABETALOL HYDROCHLORIDE [Suspect]
     Active Substance: LABETALOL\LABETALOL HYDROCHLORIDE
     Indication: HYPERTENSION
     Route: 064
     Dates: start: 20170516
  4. PROPRANOLOL [Suspect]
     Active Substance: PROPRANOLOL HYDROCHLORIDE
     Indication: HYPERTENSION
     Dosage: 80 MG
     Route: 064
     Dates: start: 20170516
  5. TRAMADOL. [Suspect]
     Active Substance: TRAMADOL
     Indication: DIABETIC NEUROPATHY
     Dosage: ALSO RECEIVED AS 50 MG DOSE.
     Route: 064
     Dates: start: 20160930, end: 20170306
  6. LANTUS [Suspect]
     Active Substance: INSULIN GLARGINE
     Indication: TYPE 2 DIABETES MELLITUS
     Route: 064
     Dates: start: 20170224, end: 20170914
  7. METHYLDOPA. [Suspect]
     Active Substance: METHYLDOPA
     Indication: HYPERTENSION
     Route: 064
     Dates: start: 20170720
  8. LAROXYL [Suspect]
     Active Substance: AMITRIPTYLINE HYDROCHLORIDE
     Indication: DIABETIC NEUROPATHY
     Route: 064
     Dates: start: 20160930
  9. LARGACTIL [Suspect]
     Active Substance: CHLORPROMAZINE
     Indication: BIPOLAR I DISORDER
     Route: 064
     Dates: start: 20170720
  10. AMITRIPTYLINE [Suspect]
     Active Substance: AMITRIPTYLINE
     Indication: PRODUCT USED FOR UNKNOWN INDICATION
     Dosage: UNK
     Route: 064
  11. RAMIPRIL. [Suspect]
     Active Substance: RAMIPRIL
     Indication: HYPERTENSION
     Route: 064
     Dates: start: 20160930, end: 20170224
  12. NICARDIPINE [Suspect]
     Active Substance: NICARDIPINE
     Indication: HYPERTENSION
     Dosage: 50MG FORM LP X2/DAY
     Route: 064
     Dates: start: 20170405, end: 20170914
  13. HUMALOG [Suspect]
     Active Substance: INSULIN LISPRO
     Indication: TYPE 2 DIABETES MELLITUS
     Route: 064
     Dates: start: 20170224
  14. DIFFU K [Suspect]
     Active Substance: POTASSIUM CHLORIDE
     Indication: HYPOKALAEMIA
     Dosage: 2-3 TIMES A DAY
     Route: 064
     Dates: start: 20170804
  15. GABAPENTINE ARROW [Suspect]
     Active Substance: GABAPENTIN
     Indication: DIABETIC NEUROPATHY
     Route: 064
     Dates: start: 20160930
  16. POTASSIUM [Suspect]
     Active Substance: POTASSIUM
     Indication: PRODUCT USED FOR UNKNOWN INDICATION
     Dosage: UNK
     Route: 064
  17. GABAPENTIN. [Suspect]
     Active Substance: GABAPENTIN
     Indication: DIABETIC NEUROPATHY
     Dosage: 800 MG, QD?ALSO RECEIVED 400 MG
     Route: 064
     Dates: start: 20160930
  18. METFORMIN [Suspect]
     Active Substance: METFORMIN HYDROCHLORIDE
     Indication: TYPE 2 DIABETES MELLITUS
     Route: 064
     Dates: start: 20160930, end: 20170224
  19. TARDYFERON [Suspect]
     Active Substance: FERROUS SULFATE
     Indication: NORMOCHROMIC NORMOCYTIC ANAEMIA
     Route: 064
     Dates: start: 20170313
  20. FOLINIC ACID [Suspect]
     Active Substance: LEUCOVORIN
     Indication: NORMOCHROMIC NORMOCYTIC ANAEMIA
     Route: 064
     Dates: start: 20170224, end: 20170313
  21. AMOXICILLIN. [Suspect]
     Active Substance: AMOXICILLIN
     Indication: PRODUCT USED FOR UNKNOWN INDICATION
     Dosage: ALSO RECEIVED AS 1 MG DOSE.
     Route: 064
     Dates: start: 20170804, end: 20170811
  22. GLICLAZIDE [Suspect]
     Active Substance: GLICLAZIDE
     Indication: TYPE 2 DIABETES MELLITUS
     Route: 064
     Dates: start: 20160930, end: 20170224
  23. FORLAX [Suspect]
     Active Substance: POLYETHYLENE GLYCOL 4000
     Indication: CONSTIPATION
     Route: 064
     Dates: start: 20160930, end: 20170405
  24. INSULIN [Suspect]
     Active Substance: INSULIN NOS
     Indication: PRODUCT USED FOR UNKNOWN INDICATION
     Dosage: UNK
     Route: 064
  25. IRON [Suspect]
     Active Substance: IRON
     Indication: NORMOCHROMIC NORMOCYTIC ANAEMIA
     Route: 064
     Dates: start: 20170313, end: 20170914
  26. LEVEMIR [Suspect]
     Active Substance: INSULIN DETEMIR
     Indication: TYPE 2 DIABETES MELLITUS
     Route: 064
     Dates: start: 20160930, end: 20170224
  27. FUROSEMIDE ARROW [Suspect]
     Active Substance: FUROSEMIDE
     Indication: HYPERTENSION
     Dosage: 40 MG, SCORED TABLET
     Route: 064
     Dates: start: 20170516
  28. FOLIC ACID. [Suspect]
     Active Substance: FOLIC ACID
     Indication: NORMOCHROMIC NORMOCYTIC ANAEMIA
     Dosage: ALSO RECEIVED 5 MG FROM 24-FEB-2017?TO 14-SEP-2017
     Route: 064
     Dates: start: 20170313
  29. NICOPATCH [Suspect]
     Active Substance: NICOTINE
     Indication: EX-TOBACCO USER
     Route: 064
     Dates: start: 20170224, end: 20170516
  30. LOXEN (NICARDIPINE) [Suspect]
     Active Substance: NICARDIPINE
     Indication: HYPERTENSION
     Route: 064
     Dates: start: 20170313, end: 20170405
  31. CHLORPROMAZINE. [Suspect]
     Active Substance: CHLORPROMAZINE
     Indication: PRODUCT USED FOR UNKNOWN INDICATION
     Dosage: 25 MG, QD
     Route: 064
     Dates: start: 20170722

REACTIONS (5)
  - Neutropenia [Not Recovered/Not Resolved]
  - Foetal exposure during pregnancy [Unknown]
  - Low birth weight baby [Unknown]
  - Foetal disorder [Unknown]
  - Premature baby [Not Recovered/Not Resolved]

NARRATIVE: CASE EVENT DATE: 20170914
